FAERS Safety Report 11631915 (Version 1)
Quarter: 2015Q4

REPORT INFORMATION
  Report Type: Spontaneous
  Country: US (occurrence: None)
  Receive Date: 20151013
  Receipt Date: 20151013
  Transmission Date: 20160304
  Serious: No
  Sender: FDA-Public Use
  Company Number: None

PATIENT
  Age: 42 Year
  Sex: Female
  Weight: 88.45 kg

DRUGS (9)
  1. SEROQUEL [Concomitant]
     Active Substance: QUETIAPINE FUMARATE
  2. TANZEUM [Suspect]
     Active Substance: ALBIGLUTIDE
     Indication: DIABETES MELLITUS INADEQUATE CONTROL
     Dosage: 50 MG GIVEN INTO /UNDER THE SKIN
     Dates: start: 20150923, end: 20151007
  3. LEVEMIR [Concomitant]
     Active Substance: INSULIN DETEMIR
  4. XANAX [Concomitant]
     Active Substance: ALPRAZOLAM
  5. ACTOS [Concomitant]
     Active Substance: PIOGLITAZONE HYDROCHLORIDE
  6. CYMBALTA [Concomitant]
     Active Substance: DULOXETINE HYDROCHLORIDE
  7. TANXEUM [Concomitant]
  8. TRADODONE [Concomitant]
  9. FENTANYL TRANSDERMAL SYSTEM [Concomitant]
     Active Substance: FENTANYL

REACTIONS (3)
  - Movement disorder [None]
  - Arthralgia [None]
  - Gait disturbance [None]

NARRATIVE: CASE EVENT DATE: 20150930
